FAERS Safety Report 12537330 (Version 3)
Quarter: 2016Q3

REPORT INFORMATION
  Report Type: Report from Study
  Country: CA (occurrence: CA)
  Receive Date: 20160707
  Receipt Date: 20160812
  Transmission Date: 20161109
  Serious: Yes (Other)
  Sender: FDA-Public Use
  Company Number: CA-JNJFOC-20160701299

PATIENT
  Sex: Male
  Weight: 69 kg

DRUGS (1)
  1. REMICADE [Suspect]
     Active Substance: INFLIXIMAB
     Indication: CROHN^S DISEASE
     Dosage: TOTAL 97 INFUSION RECEIVED
     Route: 042

REACTIONS (5)
  - Product use issue [Unknown]
  - Frequent bowel movements [Unknown]
  - Off label use [Unknown]
  - Stenosis [Unknown]
  - Drug ineffective [Unknown]
